FAERS Safety Report 10620538 (Version 2)
Quarter: 2014Q4

REPORT INFORMATION
  Report Type: Spontaneous
  Country: ES (occurrence: ES)
  Receive Date: 20141202
  Receipt Date: 20141210
  Transmission Date: 20150529
  Serious: Yes (Other)
  Sender: FDA-Public Use
  Company Number: ES-GLAXOSMITHKLINE-ES2014GSK025014

PATIENT

DRUGS (1)
  1. REVOLADE [Suspect]
     Active Substance: ELTROMBOPAG
     Indication: IMMUNE THROMBOCYTOPENIC PURPURA
     Dosage: 50 MG, UNK
     Dates: start: 20140904

REACTIONS (3)
  - Neoplasm progression [Unknown]
  - Acute myeloid leukaemia [Not Recovered/Not Resolved]
  - Erythroblastosis [Unknown]

NARRATIVE: CASE EVENT DATE: 201410
